FAERS Safety Report 24278751 (Version 1)
Quarter: 2024Q3

REPORT INFORMATION
  Report Type: Spontaneous
  Country: CN (occurrence: CN)
  Receive Date: 20240903
  Receipt Date: 20240903
  Transmission Date: 20241017
  Serious: Yes (Hospitalization, Other)
  Sender: BAYER
  Company Number: CN-BAYER-2024A125622

PATIENT
  Age: 60 Year
  Sex: Female
  Weight: 45 kg

DRUGS (1)
  1. STIVARGA [Suspect]
     Active Substance: REGORAFENIB MONOHYDRATE
     Indication: Targeted cancer therapy
     Dosage: 160 MG, QD
     Route: 048
     Dates: start: 20231027, end: 20240815

REACTIONS (9)
  - Arthralgia [None]
  - Metastases to bone [None]
  - Hepatitis [None]
  - Hepatic cirrhosis [None]
  - White blood cell count decreased [Recovered/Resolved]
  - Platelet count decreased [Recovering/Resolving]
  - Splenomegaly [None]
  - Hepatic cyst [None]
  - Renal cyst [None]

NARRATIVE: CASE EVENT DATE: 20240601
